FAERS Safety Report 6273037-8 (Version None)
Quarter: 2009Q3

REPORT INFORMATION
  Report Type: 
  Country: None (occurrence: None)
  Receive Date: 20090715
  Receipt Date: 20090715
  Transmission Date: 20100115
  Serious: Yes (Life-Threatening)
  Sender: FDA-Public Use
  Company Number: None

PATIENT
  Sex: Male

DRUGS (1)
  1. NEURONTIN [Suspect]
     Indication: POST-TRAUMATIC EPILEPSY
     Dosage: 900 MG PO TID STARTED PRIOR TO 2004
     Route: 048

REACTIONS (1)
  - CONVULSION [None]
